FAERS Safety Report 5353719-2 (Version None)
Quarter: 2007Q2

REPORT INFORMATION
  Report Type: 
  Country: None (occurrence: None)
  Receive Date: 20070521
  Receipt Date: 20070122
  Transmission Date: 20071010
  Serious: No
  Sender: FDA-Public Use
  Company Number: WAES 0701USA03951

PATIENT
  Age: 50 Year
  Sex: Male

DRUGS (6)
  1. JANUVIA [Suspect]
     Indication: BLOOD GLUCOSE
     Dosage: PO
     Route: 048
  2. BENICAR [Concomitant]
  3. NEXIUM [Concomitant]
  4. PROZAC [Concomitant]
  5. TRICOR [Concomitant]
  6. GLYCOPYRROLATE [Concomitant]

REACTIONS (1)
  - DIABETIC KETOACIDOSIS [None]
